FAERS Safety Report 17553462 (Version 3)
Quarter: 2020Q2

REPORT INFORMATION
  Report Type: Report from Study
  Country: US (occurrence: US)
  Receive Date: 20200318
  Receipt Date: 20200504
  Transmission Date: 20200713
  Serious: Yes (Death)
  Sender: FDA-Public Use
  Company Number: US-ROCHE-2550404

PATIENT
  Age: 66 Year
  Sex: Female

DRUGS (14)
  1. TRAMADOL. [Concomitant]
     Active Substance: TRAMADOL
  2. HUMALOG [Concomitant]
     Active Substance: INSULIN LISPRO
  3. PRILOSEC [Concomitant]
     Active Substance: OMEPRAZOLE MAGNESIUM
  4. MELOXICAM. [Concomitant]
     Active Substance: MELOXICAM
  5. OCREVUS [Suspect]
     Active Substance: OCRELIZUMAB
     Indication: RELAPSING MULTIPLE SCLEROSIS
     Dosage: FIRST HALF
     Route: 042
     Dates: start: 20190304
  6. ESCITALOPRAM [Concomitant]
     Active Substance: ESCITALOPRAM OXALATE
  7. HYDROXYZINE [Concomitant]
     Active Substance: HYDROXYZINE HYDROCHLORIDE
  8. OCREVUS [Suspect]
     Active Substance: OCRELIZUMAB
     Dosage: SECOND HALF
     Route: 065
     Dates: start: 20190321
  9. ENOXAPARIN [Concomitant]
     Active Substance: ENOXAPARIN
  10. ATORVASTATIN [Concomitant]
     Active Substance: ATORVASTATIN
  11. CARVEDILOL. [Concomitant]
     Active Substance: CARVEDILOL
     Route: 065
  12. ENALAPRIL [Concomitant]
     Active Substance: ENALAPRIL
  13. ANCEF [Concomitant]
     Active Substance: CEFAZOLIN SODIUM
  14. OCREVUS [Suspect]
     Active Substance: OCRELIZUMAB
     Route: 042
     Dates: start: 20190923

REACTIONS (1)
  - Death [Fatal]

NARRATIVE: CASE EVENT DATE: 20200121
